FAERS Safety Report 19427782 (Version 1)
Quarter: 2021Q2

REPORT INFORMATION
  Report Type: Spontaneous
  Country: IE (occurrence: IE)
  Receive Date: 20210617
  Receipt Date: 20210617
  Transmission Date: 20210717
  Serious: No
  Sender: FDA-Public Use
  Company Number: IE-GLAXOSMITHKLINE-GB2021EME122922

PATIENT
  Age: 68 Year
  Sex: Male

DRUGS (3)
  1. RELVAR ELLIPTA [Suspect]
     Active Substance: FLUTICASONE FUROATE\VILANTEROL TRIFENATATE
     Indication: CHRONIC OBSTRUCTIVE PULMONARY DISEASE
     Dosage: UNK UNK, QD 184/22
     Dates: start: 20210526
  2. SALBUTAMOL [Suspect]
     Active Substance: ALBUTEROL
     Indication: CHRONIC OBSTRUCTIVE PULMONARY DISEASE
     Dosage: UNK EMERGENCY USE UP TO A LIMIT OF FOUR TIMES DAILY
     Dates: start: 20210526
  3. PFIZER?BIONTECH COVID?19 VACCINE [Suspect]
     Active Substance: TOZINAMERAN
     Indication: COVID-19 PROPHYLAXIS
     Dosage: UNK

REACTIONS (8)
  - Oropharyngeal discomfort [Unknown]
  - Condition aggravated [Unknown]
  - Sputum discoloured [Unknown]
  - Dysphonia [Unknown]
  - Catarrh [Unknown]
  - Secretion discharge [Unknown]
  - Pain in extremity [Unknown]
  - Drug ineffective [Unknown]

NARRATIVE: CASE EVENT DATE: 20210531
